FAERS Safety Report 20415181 (Version 1)
Quarter: 2022Q1

REPORT INFORMATION
  Report Type: Spontaneous
  Country: CH (occurrence: CH)
  Receive Date: 20220202
  Receipt Date: 20220202
  Transmission Date: 20220424
  Serious: Yes (Other)
  Sender: FDA-Public Use
  Company Number: CH-BoehringerIngelheim-2022-BI-150524

PATIENT
  Age: 65 Year
  Sex: Male

DRUGS (5)
  1. PRAMIPEXOLE [Suspect]
     Active Substance: PRAMIPEXOLE
     Indication: Restless legs syndrome
  2. PRAMIPEXOLE [Suspect]
     Active Substance: PRAMIPEXOLE
  3. PRAMIPEXOLE [Suspect]
     Active Substance: PRAMIPEXOLE
  4. ROTIGOTINE [Concomitant]
     Active Substance: ROTIGOTINE
     Indication: Product used for unknown indication
  5. CLONAZEPAM [Concomitant]
     Active Substance: CLONAZEPAM
     Indication: Product used for unknown indication
     Dosage: AT BEDTIME

REACTIONS (4)
  - Restless legs syndrome [Recovering/Resolving]
  - Fall [Unknown]
  - Fracture [Unknown]
  - Sleep attacks [Recovering/Resolving]
